FAERS Safety Report 23152939 (Version 1)
Quarter: 2023Q4

REPORT INFORMATION
  Report Type: Spontaneous
  Country: JP (occurrence: JP)
  Receive Date: 20231107
  Receipt Date: 20231107
  Transmission Date: 20240109
  Serious: Yes (Hospitalization)
  Sender: FDA-Public Use
  Company Number: JP-MACLEODS PHARMACEUTICALS US LTD-MAC2014001503

PATIENT

DRUGS (2)
  1. MONTELUKAST [Suspect]
     Active Substance: MONTELUKAST SODIUM
     Indication: Asthma
     Dosage: UNK
     Route: 065
  2. CEFDITOREN PIVOXIL [Suspect]
     Active Substance: CEFDITOREN PIVOXIL
     Indication: Sinusitis
     Dosage: UNK
     Route: 065

REACTIONS (3)
  - Eosinophilic granulomatosis with polyangiitis [Recovered/Resolved]
  - Hyperlipidaemia [Recovered/Resolved]
  - Hepatic steatosis [Recovered/Resolved]
